FAERS Safety Report 21418123 (Version 1)
Quarter: 2022Q4

REPORT INFORMATION
  Report Type: Spontaneous
  Country: US (occurrence: None)
  Receive Date: 20221005
  Receipt Date: 20221005
  Transmission Date: 20230113
  Serious: No
  Sender: FDA-Public Use
  Company Number: None

PATIENT
  Age: 36 Year
  Sex: Female

DRUGS (1)
  1. GILLETTE CLINICAL PROTECTION COOL WAVE CLEAR [Suspect]
     Active Substance: ALUMINUM ZIRCONIUM OCTACHLOROHYDREX GLY
     Indication: Hyperhidrosis
     Dosage: OTHER QUANTITY : 2.6 OUNCE(S);?FREQUENCY : DAILY;?
     Route: 061

REACTIONS (2)
  - Rash [None]
  - Rash pruritic [None]
